FAERS Safety Report 8259240-6 (Version None)
Quarter: 2012Q2

REPORT INFORMATION
  Report Type: 
  Country: None (occurrence: None)
  Receive Date: 20120404
  Receipt Date: 20120328
  Transmission Date: 20120825
  Serious: Yes (Other)
  Sender: FDA-Public Use
  Company Number: US-ASTRAZENECA-2011SE62107

PATIENT
  Age: 56 Year
  Sex: Male
  Weight: 122 kg

DRUGS (4)
  1. PAXIL [Concomitant]
  2. XANAX [Concomitant]
  3. CRESTOR [Suspect]
     Indication: HYPERLIPIDAEMIA
     Route: 048
  4. WELLBUTRIN [Concomitant]

REACTIONS (14)
  - AUTOIMMUNE THROMBOCYTOPENIA [None]
  - NASAL OBSTRUCTION [None]
  - BLOOD CHOLESTEROL INCREASED [None]
  - PERITONSILLAR ABSCESS [None]
  - MALAISE [None]
  - IRRITABLE BOWEL SYNDROME [None]
  - DYSPEPSIA [None]
  - DRUG DOSE OMISSION [None]
  - ANXIETY [None]
  - MYALGIA [None]
  - FATIGUE [None]
  - DIFFUSE LARGE B-CELL LYMPHOMA STAGE I [None]
  - WEIGHT INCREASED [None]
  - DEPRESSION [None]
